FAERS Safety Report 8407474-X (Version None)
Quarter: 2012Q2

REPORT INFORMATION
  Report Type: 
  Country: None (occurrence: None)
  Receive Date: 20120604
  Receipt Date: 20120531
  Transmission Date: 20120825
  Serious: No
  Sender: FDA-Public Use
  Company Number: US-PFIZER INC-2012132065

PATIENT
  Sex: Female
  Weight: 104 kg

DRUGS (6)
  1. LISINOPRIL [Concomitant]
     Indication: HYPERTENSION
     Dosage: 10 MG, DAILY
     Dates: start: 20080101
  2. TOPROL-XL [Concomitant]
     Indication: HYPERTENSION
     Dosage: 100 MG, DAILY
     Dates: start: 19990101
  3. CRESTOR [Concomitant]
     Indication: BLOOD CHOLESTEROL INCREASED
     Dosage: 20 MG, DAILY
     Dates: start: 20111201
  4. PRISTIQ [Suspect]
     Indication: DEPRESSION
     Dosage: 50 MG, UNK
     Route: 048
     Dates: start: 20110101, end: 20120529
  5. METFORMIN [Concomitant]
     Indication: DIABETES MELLITUS
     Dosage: 500 MG, 2X/DAY
     Dates: start: 20120101
  6. RELPAX [Concomitant]
     Indication: MIGRAINE
     Dosage: 100 MG, AS NEEDED
     Dates: start: 20111201

REACTIONS (5)
  - NAUSEA [None]
  - WITHDRAWAL SYNDROME [None]
  - ABDOMINAL DISCOMFORT [None]
  - HEADACHE [None]
  - DIARRHOEA [None]
